FAERS Safety Report 8457523-8 (Version None)
Quarter: 2012Q2

REPORT INFORMATION
  Report Type: 
  Country: None (occurrence: None)
  Receive Date: 20120622
  Receipt Date: 20120612
  Transmission Date: 20120825
  Serious: Yes (Hospitalization)
  Sender: FDA-Public Use
  Company Number: US-BIOGENIDEC-2012BI013152

PATIENT
  Age: 41 Year
  Sex: Female

DRUGS (13)
  1. TYSABRI [Suspect]
     Route: 042
     Dates: start: 20091118
  2. TYSABRI [Suspect]
     Indication: MULTIPLE SCLEROSIS
     Route: 042
     Dates: start: 20090325, end: 20090624
  3. VICTOZA [Concomitant]
     Indication: DIABETES MELLITUS
  4. NITROGLYCERIN SUBLINGUAL [Concomitant]
     Indication: CARDIAC FAILURE CONGESTIVE
  5. LASIX [Concomitant]
     Indication: CARDIAC FAILURE CONGESTIVE
  6. GLIMEPIRIDE [Concomitant]
     Indication: DIABETES MELLITUS
  7. COREG [Concomitant]
     Indication: CARDIAC FAILURE CONGESTIVE
  8. DIGOXIN [Concomitant]
     Indication: CARDIAC FAILURE CONGESTIVE
  9. SPIRONOLACTONE [Concomitant]
     Indication: CARDIAC FAILURE CONGESTIVE
  10. TORSEMIDE [Concomitant]
     Indication: CARDIAC FAILURE CONGESTIVE
  11. RANITIDINE [Concomitant]
     Indication: GASTROOESOPHAGEAL REFLUX DISEASE
  12. LISINOPRIL [Concomitant]
     Indication: CARDIAC FAILURE CONGESTIVE
  13. POTASSIUM ACETATE [Concomitant]
     Indication: CARDIAC FAILURE CONGESTIVE

REACTIONS (9)
  - PROCEDURAL PAIN [None]
  - POST-TRAUMATIC NECK SYNDROME [None]
  - SPINAL OSTEOARTHRITIS [None]
  - ROAD TRAFFIC ACCIDENT [None]
  - BACK DISORDER [None]
  - WEIGHT BEARING DIFFICULTY [None]
  - DYSSTASIA [None]
  - DERMATITIS CONTACT [None]
  - WOUND INFECTION STAPHYLOCOCCAL [None]
